FAERS Safety Report 15108723 (Version 2)
Quarter: 2018Q3

REPORT INFORMATION
  Report Type: Report from Study
  Country: GR (occurrence: GR)
  Receive Date: 20180705
  Receipt Date: 20180717
  Transmission Date: 20181010
  Serious: Yes (Death, Hospitalization, Other)
  Sender: FDA-Public Use
  Company Number: GR-TEVA-2018-GR-920790

PATIENT
  Age: 60 Year
  Weight: 54 kg

DRUGS (24)
  1. LENALIDOMIDE [Suspect]
     Active Substance: LENALIDOMIDE
     Dosage: 25 MILLIGRAM DAILY;
     Route: 048
     Dates: start: 20170403
  2. VELCADE [Suspect]
     Active Substance: BORTEZOMIB
     Dosage: .6 MILLIGRAM DAILY; LYOPHILIZED POWDER
     Route: 058
     Dates: start: 20170724, end: 20180111
  3. FILGRASTIM [Concomitant]
     Active Substance: FILGRASTIM
  4. ZOLEDRONIC ACID [Concomitant]
     Active Substance: ZOLEDRONIC ACID
  5. CYCLOPHOSPHAMIDE. [Suspect]
     Active Substance: CYCLOPHOSPHAMIDE
     Indication: PLASMA CELL MYELOMA
     Dosage: 500 MILLIGRAM DAILY; ON DAYS 1,2,3 AND 4. 141 DAYS DURATION
     Route: 042
     Dates: start: 20170724, end: 20171212
  6. DEXAMETHASONE. [Suspect]
     Active Substance: DEXAMETHASONE
     Dosage: 20 MILLIGRAM DAILY;
     Route: 042
     Dates: start: 20180122, end: 20180307
  7. POMALIDOMIDE [Suspect]
     Active Substance: POMALIDOMIDE
     Indication: PLASMA CELL MYELOMA
     Dosage: 4 MILLIGRAM DAILY;
     Route: 048
     Dates: start: 20170724, end: 20171212
  8. DEXAMETHASONE. [Suspect]
     Active Substance: DEXAMETHASONE
     Dosage: 32 MILLIGRAM DAILY;
     Route: 048
     Dates: start: 20170310, end: 20170627
  9. ETOPOSIDE. [Suspect]
     Active Substance: ETOPOSIDE
     Indication: PLASMA CELL MYELOMA
     Dosage: 50 MILLIGRAM DAILY; ON DAYS 1,2,3 AND 4.
     Route: 048
     Dates: start: 20160604
  10. THALIDOMIDE [Suspect]
     Active Substance: THALIDOMIDE
     Indication: PLASMA CELL MYELOMA
     Dosage: 100 MILLIGRAM DAILY; 21 DAYS ON AND 7 DAYS OFF.
     Route: 048
     Dates: start: 20160604
  11. VELCADE [Suspect]
     Active Substance: BORTEZOMIB
     Indication: PLASMA CELL MYELOMA
     Dosage: 2 MILLIGRAM DAILY; LYOPHILIZED POWDER?ON DAYS 1,8,15 WITH 1 WEEK OFF EVERY 28 DAY CYCLE.
     Route: 058
     Dates: start: 20170310, end: 20170413
  12. ASPIRIN. [Concomitant]
     Active Substance: ASPIRIN
  13. EPOETIN ALFA [Concomitant]
     Active Substance: ERYTHROPOIETIN
  14. VELCADE [Suspect]
     Active Substance: BORTEZOMIB
     Dosage: 2 MILLIGRAM DAILY; LYOPHILIZED POWDER
     Route: 058
     Dates: start: 20170519, end: 20170627
  15. VELCADE [Suspect]
     Active Substance: BORTEZOMIB
     Dosage: 1.5 MILLIGRAM DAILY; LYOPHILIZED POWDER
     Route: 058
     Dates: start: 20180122, end: 20180220
  16. ADRIBLASTINA [Suspect]
     Active Substance: DOXORUBICIN HYDROCHLORIDE
     Indication: PLASMA CELL MYELOMA
     Dosage: 15 MILLIGRAM DAILY; ON DAYS 1,2,3 AND 4.
     Route: 042
     Dates: start: 20160604
  17. DEXAMETHASONE. [Suspect]
     Active Substance: DEXAMETHASONE
     Indication: PLASMA CELL MYELOMA
     Dosage: 40 MILLIGRAM DAILY; ON DAYS 1,2,3 AND 4. 218 DAYS DURATION
     Route: 048
     Dates: start: 20160604, end: 20170108
  18. CYCLOPHOSPHAMIDE. [Suspect]
     Active Substance: CYCLOPHOSPHAMIDE
     Dosage: 500 MILLIGRAM DAILY; ON DAYS 1,2,3 AND 4. 218 DURATION
     Route: 042
     Dates: start: 20160604, end: 20170108
  19. DEXAMETHASONE. [Suspect]
     Active Substance: DEXAMETHASONE
     Dosage: 20 MILLIGRAM DAILY;
     Route: 048
     Dates: start: 20170724, end: 20180111
  20. VELCADE [Suspect]
     Active Substance: BORTEZOMIB
     Dosage: 2 MILLIGRAM DAILY; LYOPHILIZED POWDER ON DAYS 1,4,8 AND 11 WITH ONE WEEK OFF. 218 DURATION
     Route: 058
     Dates: start: 20160604, end: 20170108
  21. HEPARIN [Concomitant]
     Active Substance: HEPARIN SODIUM
  22. DARATUMUMAB [Suspect]
     Active Substance: DARATUMUMAB
     Indication: PLASMA CELL MYELOMA
     Dosage: 16 MG/KG DAILY;
     Route: 042
     Dates: start: 20180122, end: 20180306
  23. LENALIDOMIDE [Suspect]
     Active Substance: LENALIDOMIDE
     Indication: PLASMA CELL MYELOMA
     Dosage: 25 MILLIGRAM DAILY;
     Route: 048
     Dates: start: 20170310, end: 20170316
  24. CARBOPLATIN. [Suspect]
     Active Substance: CARBOPLATIN
     Indication: PLASMA CELL MYELOMA
     Dosage: 30 MILLIGRAM DAILY; ON DAYS 1,2,3 AND 4.
     Route: 042
     Dates: start: 20160604

REACTIONS (10)
  - Acute kidney injury [Fatal]
  - Urinary tract infection bacterial [Recovered/Resolved]
  - Urinary tract infection [Recovered/Resolved]
  - Febrile neutropenia [Recovered/Resolved]
  - Thrombocytopenia [Recovered/Resolved]
  - Pancytopenia [Not Recovered/Not Resolved]
  - Respiratory tract infection [Recovered/Resolved]
  - Viral infection [Recovered/Resolved]
  - Off label use [Recovered/Resolved]
  - Sinus tachycardia [Not Recovered/Not Resolved]

NARRATIVE: CASE EVENT DATE: 20160604
